FAERS Safety Report 9617082 (Version 2)
Quarter: 2013Q4

REPORT INFORMATION
  Report Type: Report from Study
  Country: BR (occurrence: BR)
  Receive Date: 20131011
  Receipt Date: 20131011
  Transmission Date: 20140711
  Serious: Yes (Death, Hospitalization)
  Sender: FDA-Public Use
  Company Number: BR-ROCHE-1143136

PATIENT
  Age: 56 Year
  Sex: Female
  Weight: 71 kg

DRUGS (17)
  1. MABTHERA [Suspect]
     Indication: RHEUMATOID ARTHRITIS
     Dosage: LAST INFUSION: 16/MAR/2012
     Route: 065
     Dates: start: 20110523
  2. MABTHERA [Suspect]
     Route: 065
     Dates: start: 20110606
  3. MABTHERA [Suspect]
     Route: 065
     Dates: start: 20120229, end: 20120316
  4. MABTHERA [Suspect]
     Route: 065
     Dates: end: 201301
  5. FLUCONAZOLE [Concomitant]
     Route: 065
     Dates: end: 20130721
  6. NATRILIX [Concomitant]
  7. GALVUS [Concomitant]
     Indication: DIABETES MELLITUS
  8. ACICLOVIR [Concomitant]
     Route: 065
  9. COLPOTROPHINE [Concomitant]
     Route: 065
  10. ANGELIQ [Concomitant]
  11. NEXIUM [Concomitant]
  12. SINERGEN [Concomitant]
  13. METFORMIN [Concomitant]
     Indication: DIABETES MELLITUS
  14. PREDNISONE [Concomitant]
  15. FENOFIBRATE [Concomitant]
  16. PARIET [Concomitant]
  17. CYMBALTA [Concomitant]

REACTIONS (12)
  - Cardiac arrest [Fatal]
  - Dysentery [Unknown]
  - Pain [Unknown]
  - Speech disorder [Unknown]
  - Sinusitis [Recovered/Resolved]
  - Cough [Not Recovered/Not Resolved]
  - Respiratory tract infection fungal [Not Recovered/Not Resolved]
  - Genital herpes [Not Recovered/Not Resolved]
  - Urinary tract infection [Recovered/Resolved]
  - Pharyngitis [Recovered/Resolved]
  - Infusion related reaction [Recovered/Resolved]
  - Decreased immune responsiveness [Unknown]
